FAERS Safety Report 4989865-2 (Version None)
Quarter: 2006Q2

REPORT INFORMATION
  Report Type: 
  Country: None (occurrence: None)
  Receive Date: 20060428
  Receipt Date: 20060424
  Transmission Date: 20061013
  Serious: Yes (Hospitalization)
  Sender: FDA-Public Use
  Company Number: FR9348519NOV2002

PATIENT
  Age: 58 Year
  Sex: Female

DRUGS (3)
  1. RAPAMUNE [Suspect]
     Indication: RENAL TRANSPLANT
     Dosage: ORAL
     Route: 048
  2. CELLCEPT [Concomitant]
  3. CONTANCYL (PREDNISONE) [Concomitant]

REACTIONS (5)
  - CYST [None]
  - HAEMATURIA [None]
  - LYMPHOCELE [None]
  - POST PROCEDURAL COMPLICATION [None]
  - RENAL IMPAIRMENT [None]
